FAERS Safety Report 20909658 (Version 1)
Quarter: 2022Q2

REPORT INFORMATION
  Report Type: Spontaneous
  Country: US (occurrence: US)
  Receive Date: 20220603
  Receipt Date: 20220603
  Transmission Date: 20220721
  Serious: No
  Sender: FDA-Public Use
  Company Number: US-OTSUKA-2022_023581

PATIENT
  Sex: Female

DRUGS (2)
  1. SAMSCA [Suspect]
     Active Substance: TOLVAPTAN
     Indication: Hyponatraemia
     Dosage: UNK
     Route: 065
     Dates: start: 2017
  2. SAMSCA [Suspect]
     Active Substance: TOLVAPTAN
     Indication: Hypoosmolar state

REACTIONS (3)
  - Blood sodium decreased [Unknown]
  - Therapy interrupted [Unknown]
  - Product use in unapproved indication [Unknown]
